FAERS Safety Report 19239658 (Version 1)
Quarter: 2021Q2

REPORT INFORMATION
  Report Type: Spontaneous
  Country: IT (occurrence: IT)
  Receive Date: 20210510
  Receipt Date: 20210510
  Transmission Date: 20210717
  Serious: Yes (Hospitalization)
  Sender: FDA-Public Use
  Company Number: IT-PFIZER INC-2021505880

PATIENT
  Age: 53 Year
  Sex: Male

DRUGS (1)
  1. ZESSLY [Suspect]
     Active Substance: INFLIXIMAB
     Indication: COLITIS
     Dosage: 300 MG (CYCLICAL)
     Route: 042
     Dates: start: 20200707, end: 20201111

REACTIONS (5)
  - Gastrointestinal inflammation [Recovered/Resolved]
  - Haematochezia [Recovered/Resolved]
  - Adenocarcinoma [Recovered/Resolved]
  - Drug ineffective [Recovered/Resolved]
  - Diarrhoea [Recovered/Resolved]

NARRATIVE: CASE EVENT DATE: 20201115
